FAERS Safety Report 20041293 (Version 3)
Quarter: 2022Q1

REPORT INFORMATION
  Report Type: Report from Study
  Country: US (occurrence: US)
  Receive Date: 20211107
  Receipt Date: 20220207
  Transmission Date: 20220424
  Serious: No
  Sender: FDA-Public Use
  Company Number: US-BIOVITRUM-2021US7182

PATIENT
  Age: 31 Year
  Sex: Female

DRUGS (2)
  1. KINERET [Suspect]
     Active Substance: ANAKINRA
     Indication: Still^s disease
     Route: 058
     Dates: start: 20210717
  2. AMOXICILLIN [Suspect]
     Active Substance: AMOXICILLIN

REACTIONS (8)
  - Localised infection [Unknown]
  - Hepatic enzyme increased [Unknown]
  - Rash [Unknown]
  - Injection site inflammation [Unknown]
  - Injection site pruritus [Unknown]
  - Treatment noncompliance [Unknown]
  - Maternal exposure during pregnancy [Recovered/Resolved]
  - Off label use [Not Recovered/Not Resolved]

NARRATIVE: CASE EVENT DATE: 20210717
